FAERS Safety Report 5396668-6 (Version None)
Quarter: 2007Q3

REPORT INFORMATION
  Report Type: 
  Country: None (occurrence: None)
  Receive Date: 20070725
  Receipt Date: 20070724
  Transmission Date: 20080115
  Serious: Yes (Other)
  Sender: FDA-Public Use
  Company Number: B0480343A

PATIENT
  Age: 24 Year
  Sex: Female
  Weight: 48 kg

DRUGS (4)
  1. PAXIL [Suspect]
     Indication: OBSESSIVE-COMPULSIVE DISORDER
     Route: 048
     Dates: start: 20070427, end: 20070518
  2. MEILAX [Concomitant]
     Indication: SOMATOFORM DISORDER
     Dosage: 1MG TWICE PER DAY
     Route: 048
     Dates: start: 20070320
  3. SEDIEL [Concomitant]
     Indication: SOMATOFORM DISORDER
     Dosage: 10MG PER DAY
     Route: 048
     Dates: start: 20070115
  4. DEPAS [Concomitant]
     Indication: INSOMNIA
     Dosage: .5MG PER DAY
     Route: 048
     Dates: start: 20070514

REACTIONS (8)
  - ACTIVATION SYNDROME [None]
  - ANOREXIA [None]
  - CHEST DISCOMFORT [None]
  - DEPRESSED MOOD [None]
  - DRUG WITHDRAWAL SYNDROME [None]
  - INSOMNIA [None]
  - IRRITABILITY [None]
  - NAUSEA [None]
